FAERS Safety Report 9656302 (Version 2)
Quarter: 2016Q4

REPORT INFORMATION
  Report Type: Spontaneous
  Country: US (occurrence: US)
  Receive Date: 20131030
  Receipt Date: 20161102
  Transmission Date: 20170207
  Serious: Yes (Other)
  Sender: FDA-Public Use
  Company Number: US-PFIZER INC-2013309510

PATIENT
  Age: 37 Year
  Sex: Female
  Weight: 61.22 kg

DRUGS (7)
  1. DILANTIN [Suspect]
     Active Substance: PHENYTOIN
     Indication: EPILEPSY
     Dosage: 50 MG, 1X/DAY (TWO 100MG CAPSULES AND ONE 50MG TABLET ONCE A DAY)
     Route: 048
  2. DILANTIN [Suspect]
     Active Substance: PHENYTOIN
     Dosage: 3 DF, 1X/DAY (THREE CAPSULES IN THE MORNING)
  3. DILANTIN [Suspect]
     Active Substance: PHENYTOIN
     Dosage: TWO 100MG CAPSULES AND ONE 50MG TABLET, 1X/DAY
     Route: 048
  4. SEROQUEL [Concomitant]
     Active Substance: QUETIAPINE FUMARATE
     Dosage: 600 MG, UNK
  5. DILANTIN [Suspect]
     Active Substance: PHENYTOIN
     Indication: EPILEPSY
     Dosage: 300 MG, 1X/DAY
     Route: 048
  6. LEVOXYL [Concomitant]
     Active Substance: LEVOTHYROXINE SODIUM
     Indication: HYPOTHYROIDISM
     Dosage: UNK
  7. CLARITIN [Concomitant]
     Active Substance: LORATADINE
     Dosage: UNK AT BED TIME

REACTIONS (5)
  - Intentional product misuse [Unknown]
  - Acute kidney injury [Unknown]
  - Seizure [Unknown]
  - Hypertension [Unknown]
  - Drug level fluctuating [Unknown]
